FAERS Safety Report 11686334 (Version 2)
Quarter: 2016Q2

REPORT INFORMATION
  Report Type: Spontaneous
  Country: FR (occurrence: FR)
  Receive Date: 20151030
  Receipt Date: 20160418
  Transmission Date: 20160815
  Serious: Yes (Hospitalization)
  Sender: FDA-Public Use
  Company Number: FR-SA-2015SA168858

PATIENT
  Age: 80 Year
  Sex: Female

DRUGS (6)
  1. LASILIX [Suspect]
     Active Substance: FUROSEMIDE
     Route: 065
     Dates: end: 201509
  2. NORFLOXACIN [Suspect]
     Active Substance: NORFLOXACIN
     Indication: URINARY TRACT INFECTION
     Route: 065
     Dates: start: 20150826, end: 20150828
  3. APROVEL [Suspect]
     Active Substance: IRBESARTAN
     Route: 065
     Dates: start: 201506
  4. HEMIGOXINE NATIVELLE [Suspect]
     Active Substance: DIGOXIN
     Route: 065
  5. HEMIGOXINE NATIVELLE [Suspect]
     Active Substance: DIGOXIN
     Route: 065
  6. COUMADINE [Concomitant]
     Active Substance: WARFARIN SODIUM

REACTIONS (1)
  - Bone marrow failure [Not Recovered/Not Resolved]

NARRATIVE: CASE EVENT DATE: 20150903
